FAERS Safety Report 20404632 (Version 1)
Quarter: 2022Q1

REPORT INFORMATION
  Report Type: Spontaneous
  Country: US (occurrence: None)
  Receive Date: 20220128
  Receipt Date: 20220128
  Transmission Date: 20220424
  Serious: Yes (Other)
  Sender: FDA-Public Use
  Company Number: None

PATIENT
  Age: 43 Year
  Weight: 137.25 kg

DRUGS (3)
  1. MEKINIST [Suspect]
     Active Substance: TRAMETINIB DIMETHYL SULFOXIDE
     Dosage: FREQUENCY : DAILY;?
     Route: 048
     Dates: start: 20211005
  2. TAFINLAR [Suspect]
     Active Substance: DABRAFENIB MESYLATE
     Dosage: FREQUENCY : TWICE A DAY;?
     Route: 048
     Dates: start: 20211210
  3. IBUPROFEN [Concomitant]
     Active Substance: IBUPROFEN

REACTIONS (3)
  - Swelling face [None]
  - Swollen tongue [None]
  - Allergy to animal [None]

NARRATIVE: CASE EVENT DATE: 20220128
